FAERS Safety Report 16778727 (Version 3)
Quarter: 2020Q3

REPORT INFORMATION
  Report Type: Spontaneous
  Country: JP (occurrence: JP)
  Receive Date: 20190906
  Receipt Date: 20200925
  Transmission Date: 20201102
  Serious: No
  Sender: FDA-Public Use
  Company Number: JP-AMGEN-JPNNI2019145460

PATIENT

DRUGS (5)
  1. CALCIUM LEVOFOLINATE [Suspect]
     Active Substance: LEVOLEUCOVORIN CALCIUM
     Indication: GASTROINTESTINAL CARCINOMA
     Dosage: UNK
     Route: 041
  2. PANITUMUMAB [Suspect]
     Active Substance: PANITUMUMAB
     Indication: GASTROINTESTINAL CARCINOMA
     Dosage: UNK
     Route: 050
  3. FLUOROURACIL. [Suspect]
     Active Substance: FLUOROURACIL
     Dosage: UNK
     Route: 041
  4. IRINOTECAN HYDROCHLORIDE. [Suspect]
     Active Substance: IRINOTECAN HYDROCHLORIDE
     Indication: GASTROINTESTINAL CARCINOMA
     Dosage: UNK
     Route: 041
  5. FLUOROURACIL. [Suspect]
     Active Substance: FLUOROURACIL
     Indication: GASTROINTESTINAL CARCINOMA
     Dosage: UNK
     Route: 040

REACTIONS (2)
  - Taste disorder [Unknown]
  - Hypozincaemia [Unknown]
